FAERS Safety Report 8255160 (Version 4)
Quarter: 2014Q1

REPORT INFORMATION
  Report Type: Spontaneous
  Country: US (occurrence: US)
  Receive Date: 20111118
  Receipt Date: 20140213
  Transmission Date: 20141002
  Serious: Yes (Death)
  Sender: FDA-Public Use
  Company Number: US-GLAXOSMITHKLINE-A0953573A

PATIENT
  Age: 78 Year
  Sex: Male

DRUGS (1)
  1. AVANDIA [Suspect]
     Indication: DIABETES MELLITUS
     Route: 048
     Dates: start: 2000, end: 2010

REACTIONS (4)
  - Chronic myelomonocytic leukaemia [Fatal]
  - Cardiac disorder [Unknown]
  - Cardiovascular disorder [Unknown]
  - Cardiac failure [Unknown]
